FAERS Safety Report 11493635 (Version 8)
Quarter: 2018Q2

REPORT INFORMATION
  Report Type: Report from Study
  Country: JP (occurrence: JP)
  Receive Date: 20150911
  Receipt Date: 20180502
  Transmission Date: 20180711
  Serious: Yes (Death, Other)
  Sender: FDA-Public Use
  Company Number: JP-BRISTOL-MYERS SQUIBB COMPANY-BMS-2015-010956

PATIENT
  Age: 51 Year
  Sex: Female

DRUGS (1)
  1. NIVOLUMAB [Suspect]
     Active Substance: NIVOLUMAB
     Indication: MALIGNANT MELANOMA
     Dosage: 2 MG/KG, UNK
     Route: 041
     Dates: start: 20150205, end: 20150806

REACTIONS (11)
  - Pneumonia [Unknown]
  - Urticaria [Recovered/Resolved]
  - Pruritus [Recovered/Resolved]
  - Interstitial lung disease [Not Recovered/Not Resolved]
  - Leukopenia [Not Recovered/Not Resolved]
  - Malignant neoplasm progression [Fatal]
  - Enterocolitis [Unknown]
  - Somnolence [Recovered/Resolved]
  - Pyrexia [Recovered/Resolved]
  - Hypothyroidism [Recovered/Resolved]
  - Diarrhoea [Not Recovered/Not Resolved]

NARRATIVE: CASE EVENT DATE: 2015
